FAERS Safety Report 5948042-9 (Version None)
Quarter: 2008Q4

REPORT INFORMATION
  Report Type: 
  Country: None (occurrence: None)
  Receive Date: 20081111
  Receipt Date: 20081103
  Transmission Date: 20090506
  Serious: Yes (Hospitalization)
  Sender: FDA-Public Use
  Company Number: IT-ABBOTT-08P-083-0476192-00

PATIENT
  Sex: Male

DRUGS (4)
  1. VECLAM [Suspect]
     Indication: HELICOBACTER INFECTION
     Dosage: 1 TIME, PER DAY
     Dates: start: 20080719, end: 20080724
  2. PANTECTA [Suspect]
     Indication: HELICOBACTER INFECTION
     Dosage: 1 TIME, PER DAY
     Route: 048
     Dates: start: 20080719, end: 20080724
  3. VELAMOX [Suspect]
     Indication: HELICOBACTER INFECTION
     Dosage: 1 TIME, PER DAY
     Dates: start: 20080719, end: 20080724
  4. ENALAPRIL MALEATE [Concomitant]
     Indication: DRUG USE FOR UNKNOWN INDICATION
     Dates: start: 20060101, end: 20080724

REACTIONS (2)
  - DERMATITIS [None]
  - PHARYNGEAL OEDEMA [None]
